FAERS Safety Report 9736706 (Version 1)
Quarter: 2013Q4

REPORT INFORMATION
  Report Type: Spontaneous
  Country: US (occurrence: US)
  Receive Date: 20131206
  Receipt Date: 20131206
  Transmission Date: 20140711
  Serious: No
  Sender: FDA-Public Use
  Company Number: US-GILEAD-2009-0023866

PATIENT
  Age: 81 Year
  Sex: Female

DRUGS (7)
  1. LETAIRIS [Suspect]
     Indication: PULMONARY ARTERIAL HYPERTENSION
     Route: 048
     Dates: start: 20090728, end: 20090811
  2. ZYRTEC [Concomitant]
  3. FOSAMAX [Concomitant]
  4. ALBUTEROL [Concomitant]
  5. MAGNESIUM [Concomitant]
  6. ADVAIR DISKUS [Concomitant]
  7. PREVACID [Concomitant]

REACTIONS (3)
  - Joint swelling [Recovered/Resolved]
  - Headache [Recovered/Resolved]
  - Rash [Recovered/Resolved]
